FAERS Safety Report 9462099 (Version 1)
Quarter: 2013Q3

REPORT INFORMATION
  Report Type: Spontaneous
  Country: FR (occurrence: FR)
  Receive Date: 20130816
  Receipt Date: 20130816
  Transmission Date: 20140515
  Serious: Yes (Hospitalization)
  Sender: FDA-Public Use
  Company Number: FR-ELI_LILLY_AND_COMPANY-FR201308002107

PATIENT
  Age: 57 Year
  Sex: Female

DRUGS (5)
  1. PROZAC [Suspect]
     Indication: MAJOR DEPRESSION
     Dosage: 1 DF, UNKNOWN
     Route: 048
     Dates: start: 201205, end: 201304
  2. HYTACAND [Suspect]
     Dosage: 1 DF, UNKNOWN
     Route: 048
  3. DIFFU K [Suspect]
     Dosage: 1 DF, UNKNOWN
     Route: 048
  4. FUROSEMIDE [Suspect]
     Dosage: 1 DF, UNKNOWN
     Route: 048
  5. TIMOPTOL [Suspect]
     Dosage: 1 DF, UNKNOWN
     Route: 047

REACTIONS (2)
  - Sjogren^s syndrome [Unknown]
  - Abscess [Unknown]
